FAERS Safety Report 8060263-0 (Version None)
Quarter: 2012Q1

REPORT INFORMATION
  Report Type: 
  Country: None (occurrence: None)
  Receive Date: 20120119
  Receipt Date: 20120119
  Transmission Date: 20120608
  Serious: Yes (Hospitalization)
  Sender: FDA-Public Use
  Company Number: None

PATIENT
  Age: 87 Year
  Sex: Female
  Weight: 29.0302 kg

DRUGS (11)
  1. M.V.I. [Concomitant]
  2. ULTRAM [Concomitant]
  3. METFORMIN HCL [Concomitant]
  4. NORVASC [Concomitant]
  5. TRAVATAN [Concomitant]
  6. ZANTAC [Concomitant]
  7. COUMADIN [Suspect]
     Indication: ATRIAL FIBRILLATION
     Dosage: 5MG DAILY PO CHRONIC
     Route: 048
  8. SYNTHROID [Concomitant]
  9. LASIX [Concomitant]
  10. COMBIGAN [Concomitant]
  11. ZETIA [Concomitant]

REACTIONS (2)
  - DIVERTICULITIS INTESTINAL HAEMORRHAGIC [None]
  - GASTROINTESTINAL ARTERIOVENOUS MALFORMATION [None]
